FAERS Safety Report 7067930-6 (Version None)
Quarter: 2010Q4

REPORT INFORMATION
  Report Type: 
  Country: None (occurrence: None)
  Receive Date: 20101028
  Receipt Date: 20101018
  Transmission Date: 20110411
  Serious: Yes (Other)
  Sender: FDA-Public Use
  Company Number: US-ASTRAZENECA-2009UW07222

PATIENT
  Age: 75 Year
  Sex: Male
  Weight: 81.6 kg

DRUGS (4)
  1. CRESTOR [Suspect]
     Indication: BLOOD CHOLESTEROL
     Route: 048
     Dates: start: 20080601, end: 20100201
  2. NEXIUM [Concomitant]
  3. PLAVIX [Concomitant]
  4. CHEMOTHERAPHY [Concomitant]

REACTIONS (2)
  - CONSTIPATION [None]
  - GASTRIC CANCER [None]
